FAERS Safety Report 4425965-3 (Version None)
Quarter: 2004Q3

REPORT INFORMATION
  Report Type: 
  Country: None (occurrence: None)
  Receive Date: 20040719
  Receipt Date: 20030903
  Transmission Date: 20050211
  Serious: Yes (Hospitalization)
  Sender: FDA-Public Use
  Company Number: 178910

PATIENT
  Sex: Female
  Weight: 74.8435 kg

DRUGS (3)
  1. AVONEX [Suspect]
     Indication: MULTIPLE SCLEROSIS
     Dosage: 30 MCG QW IM
     Route: 030
     Dates: start: 19970101
  2. SENOKOT [Concomitant]
  3. ZOLOFT [Concomitant]

REACTIONS (7)
  - COUGH [None]
  - HEADACHE [None]
  - INFUSION SITE INFECTION [None]
  - MEDICAL DEVICE COMPLICATION [None]
  - MENORRHAGIA [None]
  - OEDEMA PERIPHERAL [None]
  - OSTEOPOROSIS [None]
